FAERS Safety Report 6432065 (Version 2)
Quarter: 2018Q1

REPORT INFORMATION
  Report Type: Spontaneous
  Country: GB (occurrence: GB)
  Receive Date: 20071001
  Receipt Date: 20180124
  Transmission Date: 20180509
  Serious: Yes (Hospitalization)
  Sender: FDA-Public Use
  Company Number: GB-BAUSCH-2007BL003458

PATIENT
  Age: 19 Year
  Sex: Female

DRUGS (9)
  1. AZITHROMYCIN ANHYDROUS. [Suspect]
     Active Substance: AZITHROMYCIN ANHYDROUS
     Indication: ANTIINFLAMMATORY THERAPY
     Route: 065
  2. GENTAMICIN SULFATE. [Suspect]
     Active Substance: GENTAMICIN SULFATE
     Indication: ANTI-INFECTIVE THERAPY
     Route: 042
     Dates: start: 200006, end: 2000
  3. TOBRAMYCIN. [Suspect]
     Active Substance: TOBRAMYCIN
     Route: 042
  4. MEROPENEM. [Suspect]
     Active Substance: MEROPENEM
     Route: 065
  5. MEROPENEM. [Suspect]
     Active Substance: MEROPENEM
     Indication: ANTI-INFECTIVE THERAPY
     Route: 065
     Dates: start: 200006, end: 200007
  6. MEROPENEM. [Suspect]
     Active Substance: MEROPENEM
     Indication: PSEUDOMONAS INFECTION
     Route: 065
     Dates: start: 200007
  7. GENTAMICIN SULFATE. [Suspect]
     Active Substance: GENTAMICIN SULFATE
     Indication: PSEUDOMONAS INFECTION
     Route: 042
     Dates: end: 2000
  8. TOBRAMYCIN. [Suspect]
     Active Substance: TOBRAMYCIN
     Indication: ANTI-INFECTIVE THERAPY
     Dosage: 7.6 MG/KG/DAY
     Route: 042
     Dates: start: 200007, end: 200007
  9. TOBRAMYCIN. [Suspect]
     Active Substance: TOBRAMYCIN
     Indication: PSEUDOMONAS INFECTION
     Route: 042
     Dates: start: 200007, end: 200007

REACTIONS (7)
  - Acute kidney injury [Recovered/Resolved]
  - Tinnitus [Unknown]
  - Balance disorder [Unknown]
  - Blood creatinine increased [Recovered/Resolved]
  - Dizziness [Unknown]
  - Toxicity to various agents [Recovered/Resolved with Sequelae]
  - Deafness neurosensory [Unknown]

NARRATIVE: CASE EVENT DATE: 2000
